FAERS Safety Report 20077097 (Version 1)
Quarter: 2021Q4

REPORT INFORMATION
  Report Type: Spontaneous
  Country: US (occurrence: None)
  Receive Date: 20211116
  Receipt Date: 20211116
  Transmission Date: 20220303
  Serious: Yes (Other)
  Sender: FDA-Public Use
  Company Number: None

PATIENT
  Age: 61 Year
  Sex: Female
  Weight: 69.75 kg

DRUGS (5)
  1. PEPCID AC [Suspect]
     Active Substance: FAMOTIDINE
     Indication: Dyspepsia
     Dosage: OTHER QUANTITY : 1 TABLET(S);?FREQUENCY : DAILY;?
     Route: 048
     Dates: start: 20211113, end: 20211115
  2. PEPCID AC [Suspect]
     Active Substance: FAMOTIDINE
     Indication: Gastrooesophageal reflux disease
  3. Lisinopril (5mg [Concomitant]
  4. Hydrochlorothiazide (6.25mg) daily [Concomitant]
  5. Whole Foods Magnesium Fizz before bed [Concomitant]

REACTIONS (4)
  - Dizziness [None]
  - Nausea [None]
  - Headache [None]
  - Muscular weakness [None]

NARRATIVE: CASE EVENT DATE: 20211115
